FAERS Safety Report 5800551-9 (Version None)
Quarter: 2008Q3

REPORT INFORMATION
  Report Type: 
  Country: None (occurrence: None)
  Receive Date: 20080701
  Receipt Date: 20080617
  Transmission Date: 20090109
  Serious: Yes (Death, Other)
  Sender: FDA-Public Use
  Company Number: 2008031550

PATIENT
  Age: 35 Year
  Sex: Male

DRUGS (1)
  1. FRAGMIN [Suspect]
     Indication: PULMONARY EMBOLISM
     Dosage: 15000 I.U. (15000 I.U., FREQUENCY: QD), SUBCUTANEOUS
     Route: 058
     Dates: start: 20071005, end: 20080503

REACTIONS (2)
  - DISEASE PROGRESSION [None]
  - HAEMOPTYSIS [None]
